FAERS Safety Report 21929003 (Version 2)
Quarter: 2025Q3

REPORT INFORMATION
  Report Type: Spontaneous
  Country: US (occurrence: US)
  Receive Date: 20230131
  Receipt Date: 20250717
  Transmission Date: 20251020
  Serious: Yes (Other)
  Sender: SANOFI AVENTIS
  Company Number: US-SA-SAC20230127000197

PATIENT
  Age: 63 Year
  Sex: Female
  Weight: 83.91 kg

DRUGS (25)
  1. DUPIXENT [Suspect]
     Active Substance: DUPILUMAB
     Indication: Asthma
     Dosage: 300 MG, QOW
     Route: 058
     Dates: start: 202202
  2. DUPIXENT [Suspect]
     Active Substance: DUPILUMAB
     Indication: Illness
     Dosage: 300 MG, QM
     Route: 058
  3. DUPIXENT [Suspect]
     Active Substance: DUPILUMAB
     Indication: Eosinophilia
  4. OMEPRAZOLE [Concomitant]
     Active Substance: OMEPRAZOLE
  5. FAMOTIDINE [Concomitant]
     Active Substance: FAMOTIDINE
  6. FLONASE ALLERGY RELIEF [Concomitant]
     Active Substance: FLUTICASONE PROPIONATE
  7. CLARITIN [Concomitant]
     Active Substance: LORATADINE
  8. MODERNA COVID-19 VACCINE [Concomitant]
     Active Substance: ELASOMERAN
  9. PROAIR DIGIHALER [Concomitant]
     Active Substance: ALBUTEROL SULFATE
  10. TRELEGY ELLIPTA [Concomitant]
     Active Substance: FLUTICASONE FUROATE\UMECLIDINIUM BROMIDE\VILANTEROL TRIFENATATE
  11. VITAMIN D2 [Concomitant]
     Active Substance: ERGOCALCIFEROL
  12. VITAMIN B COMPLEX [Concomitant]
     Active Substance: CYANOCOBALAMIN\DEXPANTHENOL\NIACINAMIDE\PYRIDOXINE HYDROCHLORIDE\RIBOFLAVIN 5^-PHOSPHATE SODIUM\THIA
  13. VITAMIN C [Concomitant]
     Active Substance: ASCORBIC ACID
  14. BIOTIN [Concomitant]
     Active Substance: BIOTIN
  15. TYLENOL [Concomitant]
     Active Substance: ACETAMINOPHEN
  16. FISH OIL [Concomitant]
     Active Substance: FISH OIL
  17. ASPIRIN [Concomitant]
     Active Substance: ASPIRIN
  18. ZYRTEC [Concomitant]
     Active Substance: CETIRIZINE HYDROCHLORIDE
  19. LOSARTAN POTASSIUM [Concomitant]
     Active Substance: LOSARTAN POTASSIUM
  20. METFORMIN [Concomitant]
     Active Substance: METFORMIN HYDROCHLORIDE
  21. RESTASIS [Concomitant]
     Active Substance: CYCLOSPORINE
  22. PROBIOTICS NOS [Concomitant]
     Active Substance: PROBIOTICS NOS
  23. IRON [Concomitant]
     Active Substance: IRON
  24. SERTRALINE HYDROCHLORIDE [Concomitant]
     Active Substance: SERTRALINE HYDROCHLORIDE
  25. GLUCOSAMINE + CHONDORITIN [Concomitant]

REACTIONS (6)
  - Pulmonary thrombosis [Unknown]
  - Hernia [Unknown]
  - Malaise [Unknown]
  - Swelling [Unknown]
  - Off label use [Unknown]
  - Product use in unapproved indication [Unknown]

NARRATIVE: CASE EVENT DATE: 20230123
